FAERS Safety Report 9655270 (Version 2)
Quarter: 2013Q4

REPORT INFORMATION
  Report Type: Spontaneous
  Country: US (occurrence: US)
  Receive Date: 20131029
  Receipt Date: 20131029
  Transmission Date: 20140711
  Serious: No
  Sender: FDA-Public Use
  Company Number: US-PURDUE-USA-2012-0087462

PATIENT
  Sex: Female

DRUGS (3)
  1. OXYCONTIN (NDA 22-272) [Suspect]
     Indication: PAIN
     Dosage: 15 MG, BID
     Route: 048
     Dates: start: 20120519
  2. OXYCODONE HCL IR CAPSULES [Suspect]
     Indication: BACK PAIN
     Dosage: 5 MG, SEE TEXT
     Route: 048
     Dates: end: 20120518
  3. MORPHINE SULFATE (SIMILAR TO NDA 19-516) [Suspect]
     Indication: BACK PAIN
     Dosage: 15 MG, BID
     Route: 048
     Dates: end: 20120518

REACTIONS (5)
  - Migraine [Not Recovered/Not Resolved]
  - Headache [Unknown]
  - Rash [Unknown]
  - Pruritus [Unknown]
  - Nausea [Not Recovered/Not Resolved]
